FAERS Safety Report 21607872 (Version 3)
Quarter: 2023Q4

REPORT INFORMATION
  Report Type: Report from Study
  Country: US (occurrence: US)
  Receive Date: 20221117
  Receipt Date: 20231024
  Transmission Date: 20240109
  Serious: No
  Sender: FDA-Public Use
  Company Number: US-IDORSIA-001947-2022-US

PATIENT
  Sex: Female

DRUGS (3)
  1. QUVIVIQ [Suspect]
     Active Substance: DARIDOREXANT
     Indication: Insomnia
     Dosage: 100 MG (4 TABLETS OF 25MG), QD
     Route: 048
  2. QUVIVIQ [Suspect]
     Active Substance: DARIDOREXANT
     Dosage: 25 MG, QD
     Route: 048
     Dates: start: 20221024
  3. ATIVAN [Concomitant]
     Active Substance: LORAZEPAM

REACTIONS (2)
  - Prescribed overdose [Unknown]
  - Drug ineffective [Not Recovered/Not Resolved]
